FAERS Safety Report 9801225 (Version 1)
Quarter: 2014Q1

REPORT INFORMATION
  Report Type: Report from Study
  Country: TW (occurrence: TW)
  Receive Date: 20140107
  Receipt Date: 20140107
  Transmission Date: 20141002
  Serious: Yes (Death, Hospitalization)
  Sender: FDA-Public Use
  Company Number: TW-SA-2013SA136480

PATIENT
  Age: 80 Year
  Sex: Female
  Weight: 63 kg

DRUGS (1)
  1. DRONEDARONE [Suspect]
     Indication: ATRIAL FIBRILLATION
     Route: 048
     Dates: start: 20131202

REACTIONS (1)
  - Pneumonia [Fatal]
